FAERS Safety Report 5137805-8 (Version None)
Quarter: 2006Q4

REPORT INFORMATION
  Report Type: 
  Country: None (occurrence: None)
  Receive Date: 20061030
  Receipt Date: 20060117
  Transmission Date: 20070319
  Serious: No
  Sender: FDA-Public Use
  Company Number: US-GLAXOSMITHKLINE-A0589644A

PATIENT
  Age: 60 Year
  Sex: Female

DRUGS (10)
  1. ADVAIR HFA [Suspect]
     Indication: CHRONIC OBSTRUCTIVE PULMONARY DISEASE
     Dosage: 1PUFF TWICE PER DAY
     Route: 055
     Dates: start: 20050101
  2. SINGULAIR [Concomitant]
  3. FLONASE [Concomitant]
  4. ALLEGRA-D 12 HOUR [Concomitant]
  5. FOSAMAX [Concomitant]
  6. CALCIUM GLUCONATE [Concomitant]
  7. VITAMIN [Concomitant]
  8. XANAX [Concomitant]
  9. SLEEP AID [Concomitant]
  10. SPIRIVA [Concomitant]

REACTIONS (1)
  - PAIN [None]
